FAERS Safety Report 25645276 (Version 1)
Quarter: 2025Q3

REPORT INFORMATION
  Report Type: Spontaneous
  Country: US (occurrence: None)
  Receive Date: 20250805
  Receipt Date: 20250805
  Transmission Date: 20251020
  Serious: Yes (Death, Hospitalization)
  Sender: FDA-CTU
  Company Number: None

PATIENT
  Age: 81 Year
  Sex: Male
  Weight: 85.2 kg

DRUGS (2)
  1. CARBOPLATIN [Suspect]
     Active Substance: CARBOPLATIN
     Dates: end: 20230620
  2. PEMBROLIZUMAB [Suspect]
     Active Substance: PEMBROLIZUMAB
     Dates: end: 20241015

REACTIONS (6)
  - Pneumonitis [None]
  - Leukocytosis [None]
  - Optic neuritis [None]
  - Optic perineuritis [None]
  - Unresponsive to stimuli [None]
  - Acute respiratory failure [None]

NARRATIVE: CASE EVENT DATE: 20241227
